FAERS Safety Report 17315118 (Version 2)
Quarter: 2020Q3

REPORT INFORMATION
  Report Type: Report from Study
  Country: US (occurrence: US)
  Receive Date: 20200124
  Receipt Date: 20200729
  Transmission Date: 20201102
  Serious: Yes (Other)
  Sender: FDA-Public Use
  Company Number: NVSC2020US017071

PATIENT
  Sex: Female

DRUGS (1)
  1. GILENYA [Suspect]
     Active Substance: FINGOLIMOD HYDROCHLORIDE
     Indication: MULTIPLE SCLEROSIS
     Dosage: 0.5 MG, QD
     Route: 065
     Dates: start: 20190118

REACTIONS (8)
  - Renal failure [Recovered/Resolved]
  - Blood potassium increased [Recovering/Resolving]
  - Depressed mood [Recovering/Resolving]
  - Dehydration [Recovered/Resolved]
  - Muscular weakness [Recovering/Resolving]
  - Breast ulceration [Recovering/Resolving]
  - Pyoderma gangrenosum [Recovering/Resolving]
  - Feeling abnormal [Recovering/Resolving]
